FAERS Safety Report 7363661-3 (Version None)
Quarter: 2011Q1

REPORT INFORMATION
  Report Type: 
  Country: None (occurrence: None)
  Receive Date: 20110321
  Receipt Date: 20110311
  Transmission Date: 20110831
  Serious: Yes (Other)
  Sender: FDA-Public Use
  Company Number: JP-NOVOPROD-322054

PATIENT
  Age: 61 Year
  Sex: Male
  Weight: 103 kg

DRUGS (18)
  1. VICTOZA [Suspect]
     Dosage: 0.6 MG, QD
     Route: 058
     Dates: start: 20101015
  2. LANTUS [Concomitant]
     Dosage: 10 U, QD
     Route: 058
     Dates: start: 20101015, end: 20101021
  3. CONIEL [Concomitant]
     Dosage: 8 MG, QD
     Route: 048
     Dates: start: 20050113
  4. VICTOZA [Suspect]
     Dosage: 0.9 MG, QD
     Route: 058
     Dates: start: 20101022
  5. ACTOS [Concomitant]
     Dosage: 30 MG, QD
     Route: 048
  6. URSO                               /00465701/ [Concomitant]
     Dosage: 600 MG, QD
     Route: 048
     Dates: start: 20080912
  7. LANTUS [Concomitant]
     Dosage: 20 U, QD
     Route: 058
     Dates: start: 20101008
  8. MELBIN                             /00082702/ [Concomitant]
     Dosage: 750 MG, QD
     Route: 048
     Dates: start: 20080912
  9. ASPIRIN [Concomitant]
     Dosage: 100 MG, QD
     Route: 048
     Dates: start: 20050113
  10. FAMOTIDINE [Concomitant]
     Dosage: 20 MG, QD
     Route: 048
     Dates: start: 20050113
  11. METOREKICIN [Concomitant]
     Dosage: 200 MG, QD
     Route: 048
     Dates: start: 20080912
  12. REBAMIPIDE [Concomitant]
     Dosage: 200 MG, QD
     Route: 048
     Dates: start: 20050113
  13. VICTOZA [Suspect]
     Indication: TYPE 2 DIABETES MELLITUS
     Dosage: 0.3 MG, QD
     Route: 058
     Dates: start: 20101008
  14. SEIBULE [Concomitant]
     Dosage: 100 MG, QD
     Route: 048
     Dates: start: 20090828
  15. ACTOS [Concomitant]
     Dosage: 3 MG, QD
     Route: 048
     Dates: start: 20080912
  16. MELBIN                             /00082702/ [Concomitant]
     Dosage: 1000 MG, QD
     Route: 048
  17. SEIBULE [Concomitant]
     Dosage: 50 MG, QD
     Route: 048
  18. OLMETEC [Concomitant]
     Dosage: 20 MG, QD
     Route: 048
     Dates: start: 20050113

REACTIONS (4)
  - DIARRHOEA [None]
  - CONDITION AGGRAVATED [None]
  - PANCREATITIS CHRONIC [None]
  - BLOOD AMYLASE INCREASED [None]
